FAERS Safety Report 7280535-7 (Version None)
Quarter: 2011Q1

REPORT INFORMATION
  Report Type: 
  Country: None (occurrence: None)
  Receive Date: 20110208
  Receipt Date: 20100927
  Transmission Date: 20110831
  Serious: Yes (Hospitalization, Other)
  Sender: FDA-Public Use
  Company Number: US-BAYER-201033957NA

PATIENT
  Sex: Female
  Weight: 82 kg

DRUGS (20)
  1. YASMIN [Suspect]
     Indication: ACNE
     Dosage: UNK UNK, UNK
     Route: 048
     Dates: start: 20050101
  2. ANTIBIOTICS [Concomitant]
     Indication: FURUNCLE
     Dosage: UNK
     Dates: start: 20090701, end: 20090701
  3. TOPAMAX [Concomitant]
     Dosage: DAILY DOSE 25 MG
  4. COENZYME Q10 [Concomitant]
  5. IBUPROFEN [Concomitant]
  6. MOBIC [Concomitant]
  7. BACITRACIN [Concomitant]
     Dosage: UNK
     Dates: start: 20090708
  8. YAZ [Suspect]
     Indication: ACNE
     Dosage: UNK UNK, UNK
     Route: 048
     Dates: start: 20050101
  9. UNCODEABLE ^UNCLASSIFIABLE^ [Concomitant]
     Indication: VOMITING
  10. UNCODEABLE ^UNCLASSIFIABLE^ [Concomitant]
     Indication: NAUSEA
  11. ZOFRAN [Concomitant]
     Indication: DUODENITIS
  12. PAMINE FORTE [Concomitant]
     Dosage: DAILY DOSE 5 MG
  13. NAPROXEN [Concomitant]
  14. CHROMIUM PICOLINATE [Concomitant]
  15. FUROSEMIDE [Concomitant]
     Dosage: UNK
     Dates: start: 20070101
  16. CLAFORAN [Concomitant]
     Dosage: UNK
     Dates: start: 20090708
  17. OCELLA [Suspect]
     Indication: ACNE
     Dosage: UNK UNK, UNK
     Route: 048
     Dates: start: 20050101
  18. UNCODEABLE ^UNCLASSIFIABLE^ [Concomitant]
     Indication: ABDOMINAL PAIN UPPER
     Dosage: UNK
     Dates: start: 20090803
  19. FLAGYL [Concomitant]
     Dosage: UNK
     Dates: start: 20090116
  20. ZOFRAN [Concomitant]
     Indication: GASTRITIS
     Dosage: UNK
     Dates: start: 20090701

REACTIONS (7)
  - VOMITING [None]
  - BILIARY COLIC [None]
  - NAUSEA [None]
  - ABDOMINAL PAIN UPPER [None]
  - BILE DUCT STONE [None]
  - CHOLECYSTITIS CHRONIC [None]
  - CHOLELITHIASIS [None]
